FAERS Safety Report 6895333-3 (Version None)
Quarter: 2010Q3

REPORT INFORMATION
  Report Type: 
  Country: None (occurrence: None)
  Receive Date: 20100802
  Receipt Date: 20100721
  Transmission Date: 20110219
  Serious: Yes (Other)
  Sender: FDA-Public Use
  Company Number: JP-PFIZER INC-2010086671

PATIENT
  Age: 31 Year
  Sex: Male
  Weight: 29 kg

DRUGS (14)
  1. ZITHROMAC [Suspect]
     Indication: UPPER RESPIRATORY TRACT INFLAMMATION
     Dosage: UNK
     Route: 048
     Dates: start: 20100706, end: 20100708
  2. PRIMIDONE [Suspect]
     Indication: EPILEPSY
     Dosage: 60 MG, 3X/DAY
     Route: 048
     Dates: end: 20100630
  3. PRIMIDONE [Suspect]
     Dosage: 53.3 MG, 3X/DAY
     Route: 048
     Dates: start: 20100701
  4. LAMICTAL [Suspect]
     Indication: EPILEPSY
     Dosage: 150 MG, 2X/DAY
     Route: 048
     Dates: start: 20100617
  5. LAMICTAL [Suspect]
     Dosage: 250 MG, UNK
     Route: 048
     Dates: start: 20090301, end: 20100616
  6. LANSOPRAZOLE [Suspect]
     Indication: REFLUX OESOPHAGITIS
     Dosage: 15 MG, 1X/DAY
     Route: 048
     Dates: start: 20090101
  7. PHENYTOIN SODIUM [Concomitant]
     Indication: EPILEPSY
     Dosage: 51 MG, 2X/DAY
     Route: 048
     Dates: end: 20100630
  8. PHENYTOIN SODIUM [Concomitant]
     Dosage: 50 MG, 2X/DAY
     Route: 048
     Dates: start: 20100701
  9. EXCEGRAN [Concomitant]
     Indication: EPILEPSY
     Dosage: 40 MG, 3X/DAY
     Route: 048
     Dates: start: 20091224
  10. MYSTAN [Concomitant]
     Indication: EPILEPSY
     Dosage: 20 MG, 1X/DAY
     Route: 048
     Dates: start: 20090401
  11. ALUMINUM MAGNESIUM HYDROXIDE [Concomitant]
     Indication: REFLUX OESOPHAGITIS
     Dosage: 8 ML, 4X/DAY
     Route: 048
  12. MUCODYNE [Concomitant]
     Indication: UPPER RESPIRATORY TRACT INFLAMMATION
     Dosage: 0.6 G, 3X/DAY
     Route: 048
     Dates: start: 20100706, end: 20100712
  13. LEFTOSE [Concomitant]
     Indication: UPPER RESPIRATORY TRACT INFLAMMATION
     Dosage: 0.6 G, 3X/DAY
     Route: 048
     Dates: start: 20100706
  14. FLOMOX [Concomitant]
     Indication: UPPER RESPIRATORY TRACT INFLAMMATION
     Dosage: 100 MG, 3X/DAY
     Route: 048
     Dates: start: 20100710, end: 20100711

REACTIONS (1)
  - ANTICONVULSANT DRUG LEVEL INCREASED [None]
